FAERS Safety Report 8823693 (Version 1)
Quarter: 2012Q4

REPORT INFORMATION
  Report Type: 
  Country: GB (occurrence: GB)
  Receive Date: 20121003
  Receipt Date: 20121003
  Transmission Date: 20130627
  Serious: Yes (Other)
  Sender: FDA-Public Use
  Company Number: GB-PFIZER INC-2012242293

PATIENT
  Age: 69 Year
  Sex: Male
  Weight: 131.2 kg

DRUGS (15)
  1. CLINDAMYCIN PHOSPHATE [Suspect]
     Indication: CELLULITIS
     Dosage: 600 mg, UNK
     Route: 042
     Dates: start: 20120913, end: 20120917
  2. WARFARIN [Interacting]
  3. FLUCLOXACILLIN [Concomitant]
     Indication: CELLULITIS
     Route: 042
  4. AQUEOUS CREAM [Concomitant]
  5. BETAHISTINE [Concomitant]
  6. CICLESONIDE [Concomitant]
  7. DIGOXIN [Concomitant]
  8. DILTIAZEM [Concomitant]
  9. FUROSEMIDE [Concomitant]
     Dosage: Held due to risk of acute kidney injury
  10. LUMIGAN [Concomitant]
  11. OMEPRAZOLE [Concomitant]
  12. SALMETEROL [Concomitant]
  13. TAMSULOSIN [Concomitant]
  14. VENTOLIN [Concomitant]
  15. WHITE SOFT PARAFFIN [Concomitant]

REACTIONS (2)
  - International normalised ratio increased [Unknown]
  - Drug interaction [Unknown]
